FAERS Safety Report 11604551 (Version 1)
Quarter: 2015Q4

REPORT INFORMATION
  Report Type: Spontaneous
  Country: US (occurrence: None)
  Receive Date: 20151006
  Receipt Date: 20151006
  Transmission Date: 20160304
  Serious: Yes (Hospitalization, Disabling)
  Sender: FDA-Public Use
  Company Number: None

PATIENT
  Age: 82 Year
  Sex: Female
  Weight: 58.97 kg

DRUGS (22)
  1. IRON [Concomitant]
     Active Substance: IRON
  2. VINPOCETINE [Concomitant]
     Active Substance: VINPOCETINE
  3. I-CAP [Concomitant]
  4. VITAMIN B12 [Concomitant]
     Active Substance: CYANOCOBALAMIN
  5. HAWTHORNE [Concomitant]
  6. ACTONEL [Suspect]
     Active Substance: RISEDRONATE SODIUM
     Indication: OSTEOPOROSIS
     Dosage: 1 - 35 MG PER WK TABLET 1 - 150 MG TABLET ONCE A MONTH IN MORNING TWO HOURS BEFORE EATING OR DRINKING BY MOUTH
     Route: 048
     Dates: start: 2007, end: 20141127
  7. DAILY VITAMIN/MINERAL/HERBAL [Concomitant]
  8. VITAMIN C [Concomitant]
     Active Substance: ASCORBIC ACID
  9. LECITHIN [Concomitant]
     Active Substance: LECITHIN
  10. ASPERIN [Concomitant]
  11. GINKGO BILBAO [Concomitant]
  12. WALKER SEAT [Concomitant]
     Active Substance: DEVICE
  13. VITAMIN D3 [Concomitant]
     Active Substance: CHOLECALCIFEROL
  14. BIOTIN [Concomitant]
     Active Substance: BIOTIN
  15. CITRACAL WITH MAGNESIUM + D3 [Concomitant]
  16. VITAMIN B COMPLEX [Concomitant]
     Active Substance: CYANOCOBALAMIN\DEXPANTHENOL\NIACINAMIDE\PYRIDOXINE HYDROCHLORIDE\RIBOFLAVIN 5^-PHOSPHATE SODIUM\THIAMINE HYDROCHLORIDE\VITAMIN B COMPLEX
  17. VITAMIN K2 [Concomitant]
     Active Substance: MENAQUINONE 6
  18. TUMERIC [Concomitant]
     Active Substance: TURMERIC
  19. GARLIC. [Concomitant]
     Active Substance: GARLIC
  20. PROLIA [Concomitant]
     Active Substance: DENOSUMAB
  21. ASHWAGANDA [Concomitant]
  22. FISH OIL [Concomitant]
     Active Substance: FISH OIL

REACTIONS (3)
  - Muscular weakness [None]
  - Femur fracture [None]
  - Gait disturbance [None]

NARRATIVE: CASE EVENT DATE: 20141201
